FAERS Safety Report 5669020-3 (Version None)
Quarter: 2008Q1

REPORT INFORMATION
  Report Type: 
  Country: None (occurrence: None)
  Receive Date: 20080317
  Receipt Date: 20080212
  Transmission Date: 20080703
  Serious: No
  Sender: FDA-Public Use
  Company Number: US-BAYER-200814198NA

PATIENT
  Age: 83 Year
  Sex: Male

DRUGS (3)
  1. LEVITRA [Suspect]
     Indication: ERECTILE DYSFUNCTION
     Route: 048
     Dates: start: 20080208
  2. INDERAL [Concomitant]
  3. METFORMIN [Concomitant]

REACTIONS (1)
  - ERECTILE DYSFUNCTION [None]
